FAERS Safety Report 4467906-9 (Version None)
Quarter: 2004Q4

REPORT INFORMATION
  Report Type: 
  Country: None (occurrence: None)
  Receive Date: 20041004
  Receipt Date: 20040930
  Transmission Date: 20050328
  Serious: Yes (Death)
  Sender: FDA-Public Use
  Company Number: MK200409-0230-1

PATIENT
  Age: 33 Year
  Sex: Male

DRUGS (1)
  1. FLUOXETINE [Suspect]
     Indication: DEPRESSION
     Dosage: 20 MG PO QD
     Route: 048

REACTIONS (5)
  - ANXIETY [None]
  - ASPIRATION [None]
  - HALLUCINATION [None]
  - INTESTINAL OBSTRUCTION [None]
  - PYREXIA [None]
